FAERS Safety Report 24945496 (Version 2)
Quarter: 2025Q1

REPORT INFORMATION
  Report Type: Spontaneous
  Country: US (occurrence: US)
  Receive Date: 20250209
  Receipt Date: 20250310
  Transmission Date: 20250409
  Serious: Yes (Death, Other)
  Sender: DR REDDYS
  Company Number: US-DRL-USA-USA/2025/02/001989

PATIENT
  Age: 48 Year
  Sex: Female

DRUGS (1)
  1. CLOZAPINE [Suspect]
     Active Substance: CLOZAPINE
     Indication: Product used for unknown indication
     Route: 048

REACTIONS (1)
  - Focal dyscognitive seizures [Fatal]
